FAERS Safety Report 14868358 (Version 1)
Quarter: 2018Q2

REPORT INFORMATION
  Report Type: Spontaneous
  Country: ES (occurrence: ES)
  Receive Date: 20180509
  Receipt Date: 20180509
  Transmission Date: 20180711
  Serious: Yes (Hospitalization, Other)
  Sender: FDA-Public Use
  Company Number: ES-BRISTOL-MYERS SQUIBB COMPANY-BMS-2018-042418

PATIENT
  Age: 71 Year
  Sex: Female

DRUGS (6)
  1. APIXABAN [Suspect]
     Active Substance: APIXABAN
     Indication: PRODUCT USED FOR UNKNOWN INDICATION
     Dosage: 10 MG, UNK
     Route: 048
     Dates: start: 201804, end: 20180418
  2. APIXABAN [Suspect]
     Active Substance: APIXABAN
     Indication: CEREBROVASCULAR ACCIDENT PROPHYLAXIS
     Dosage: 5 MG, QD
     Route: 048
     Dates: start: 20180201, end: 20180322
  3. DILTIAZEM. [Concomitant]
     Active Substance: DILTIAZEM
     Indication: ISCHAEMIC CARDIOMYOPATHY
     Dosage: 180 MG, UNK
     Route: 048
     Dates: start: 200605
  4. HYDROCHLOROTHIAZIDE. [Concomitant]
     Active Substance: HYDROCHLOROTHIAZIDE
     Indication: PRODUCT USED FOR UNKNOWN INDICATION
     Dosage: UNK
     Route: 065
     Dates: start: 2006
  5. ATORVASTATIN [Concomitant]
     Active Substance: ATORVASTATIN
     Indication: DYSLIPIDAEMIA
     Dosage: 40 MG, UNK
     Route: 048
  6. AMLODIPINE [Concomitant]
     Active Substance: AMLODIPINE BESYLATE
     Indication: ISCHAEMIC CARDIOMYOPATHY
     Dosage: 5 MG, UNK
     Route: 048
     Dates: start: 200605

REACTIONS (3)
  - Cyclic vomiting syndrome [Recovering/Resolving]
  - Off label use [Unknown]
  - Haemorrhage [Unknown]

NARRATIVE: CASE EVENT DATE: 20180418
